FAERS Safety Report 5379919-3 (Version None)
Quarter: 2007Q3

REPORT INFORMATION
  Report Type: 
  Country: None (occurrence: None)
  Receive Date: 20070703
  Receipt Date: 20070620
  Transmission Date: 20080115
  Serious: Yes (Other)
  Sender: FDA-Public Use
  Company Number: TRP_00950_2007

PATIENT

DRUGS (1)
  1. AMPHOTEC [Suspect]
     Indication: FUNGAL INFECTION
     Dosage: (DOSE UNKNOWN) UNKNOWN INTRAVENOUS
     Route: 042
     Dates: start: 20070501, end: 20070501

REACTIONS (5)
  - CHILLS [None]
  - DRUG INEFFECTIVE [None]
  - HYPOAESTHESIA ORAL [None]
  - PHARMACEUTICAL PRODUCT COMPLAINT [None]
  - PYREXIA [None]
